FAERS Safety Report 25333516 (Version 1)
Quarter: 2025Q2

REPORT INFORMATION
  Report Type: Spontaneous
  Country: US (occurrence: US)
  Receive Date: 20250520
  Receipt Date: 20250520
  Transmission Date: 20250717
  Serious: Yes (Hospitalization, Disabling, Other)
  Sender: CHEPLAPHARM
  Company Number: US-ASTRAZENECA-202505GLO006301US

PATIENT
  Age: 86 Year
  Sex: Female

DRUGS (9)
  1. QUETIAPINE [Suspect]
     Active Substance: QUETIAPINE
     Indication: Aggression
  2. QUETIAPINE [Suspect]
     Active Substance: QUETIAPINE
     Indication: Restlessness
  3. QUETIAPINE [Suspect]
     Active Substance: QUETIAPINE
     Indication: Insomnia
  4. QUETIAPINE [Suspect]
     Active Substance: QUETIAPINE
     Indication: Agitation
  5. QUETIAPINE [Suspect]
     Active Substance: QUETIAPINE
     Indication: Aggression
  6. QUETIAPINE [Suspect]
     Active Substance: QUETIAPINE
     Indication: Restlessness
  7. QUETIAPINE [Suspect]
     Active Substance: QUETIAPINE
     Indication: Insomnia
  8. QUETIAPINE [Suspect]
     Active Substance: QUETIAPINE
     Indication: Agitation
  9. OLANZAPINE [Suspect]
     Active Substance: OLANZAPINE

REACTIONS (6)
  - Neuroleptic malignant syndrome [Recovered/Resolved]
  - Gait disturbance [Recovered/Resolved]
  - Arthritis [Recovered/Resolved]
  - Arthralgia [Recovered/Resolved]
  - Delirium [Recovered/Resolved]
  - Off label use [Recovered/Resolved]
